FAERS Safety Report 6340185-3 (Version None)
Quarter: 2009Q3

REPORT INFORMATION
  Report Type: 
  Country: None (occurrence: None)
  Receive Date: 20090903
  Receipt Date: 20090824
  Transmission Date: 20100115
  Serious: Yes (Hospitalization)
  Sender: FDA-Public Use
  Company Number: US-ABBOTT-09P-163-0592938-00

PATIENT
  Sex: Female
  Weight: 57.658 kg

DRUGS (6)
  1. SYNTHROID [Suspect]
     Indication: HYPOTHYROIDISM
     Dosage: VARYING DOSES
     Dates: start: 19970101, end: 20090601
  2. SYNTHROID [Suspect]
     Dosage: VARYING DOSES
     Dates: start: 19970101, end: 20090101
  3. SYNTHROID [Suspect]
     Dates: start: 20090101
  4. SYNTHROID [Suspect]
     Dates: start: 20090101
  5. HALCION [Concomitant]
     Indication: SLEEP DISORDER THERAPY
  6. TAGAMET [Concomitant]
     Indication: ABDOMINAL DISCOMFORT

REACTIONS (10)
  - ABNORMAL BEHAVIOUR [None]
  - BURNING MOUTH SYNDROME [None]
  - CONSTIPATION [None]
  - FALL [None]
  - HEAD INJURY [None]
  - LOSS OF CONSCIOUSNESS [None]
  - OSTEOPOROSIS [None]
  - PAIN [None]
  - RIB FRACTURE [None]
  - SKIN LACERATION [None]
